FAERS Safety Report 12400087 (Version 2)
Quarter: 2016Q2

REPORT INFORMATION
  Report Type: Report from Study
  Country: CA (occurrence: CA)
  Receive Date: 20160524
  Receipt Date: 20160525
  Transmission Date: 20160815
  Serious: Yes (Hospitalization, Other)
  Sender: FDA-Public Use
  Company Number: CA-ABBVIE-16P-028-1633605-00

PATIENT
  Age: 63 Year
  Sex: Male

DRUGS (1)
  1. HOLKIRA PAK [Suspect]
     Active Substance: DASABUVIR\OMBITASVIR\PARITAPREVIR\RITONAVIR
     Indication: HEPATITIS C
     Dosage: 12.5/75/50 MG TAB 1 DAILY, DASABUVIR 250 MG TAB BID
     Route: 048
     Dates: start: 20160426

REACTIONS (1)
  - Cerebrovascular accident [Unknown]

NARRATIVE: CASE EVENT DATE: 20160518
